FAERS Safety Report 7119282-0 (Version None)
Quarter: 2010Q4

REPORT INFORMATION
  Report Type: 
  Country: None (occurrence: None)
  Receive Date: 20101123
  Receipt Date: 20101115
  Transmission Date: 20110411
  Serious: Yes (Other)
  Sender: FDA-Public Use
  Company Number: US-ABBOTT-10P-163-0685782-00

PATIENT
  Sex: Male
  Weight: 98.064 kg

DRUGS (8)
  1. HUMIRA [Suspect]
     Indication: RHEUMATOID ARTHRITIS
     Route: 058
     Dates: start: 20071101, end: 20101112
  2. HUMIRA [Suspect]
     Route: 058
     Dates: start: 20101120
  3. METHOTREXATE [Concomitant]
     Indication: RHEUMATOID ARTHRITIS
     Route: 048
  4. PREDNISONE [Concomitant]
     Indication: RHEUMATOID ARTHRITIS
     Dosage: 1 TAB ALTERNATING 1/2 TAB
     Route: 048
  5. FOLIC ACID [Concomitant]
     Indication: VITAMIN SUPPLEMENTATION
     Route: 048
  6. CALTRATE D PLUS MINERALS [Concomitant]
     Indication: MINERAL SUPPLEMENTATION
     Route: 048
  7. ALPRAZOLAM [Concomitant]
     Indication: NERVOUSNESS
     Route: 048
  8. ALPRAZOLAM [Concomitant]
     Indication: ANXIETY

REACTIONS (1)
  - POLYP [None]
